FAERS Safety Report 6417352-3 (Version None)
Quarter: 2009Q4

REPORT INFORMATION
  Report Type: 
  Country: None (occurrence: None)
  Receive Date: 20091028
  Receipt Date: 20091016
  Transmission Date: 20100525
  Serious: Yes (Death)
  Sender: FDA-Public Use
  Company Number: KR-PFIZER INC-2009284114

PATIENT
  Age: 62 Year

DRUGS (6)
  1. VORICONAZOLE [Suspect]
     Indication: ASPERGILLOSIS
     Dosage: 400 MG, 2X/DAY
     Route: 048
     Dates: start: 20070409, end: 20070409
  2. VORICONAZOLE [Suspect]
     Dosage: 200 MG, 2X/DAY
     Route: 048
     Dates: start: 20070410, end: 20070410
  3. METRONIDAZOLE [Concomitant]
     Indication: PSEUDOMEMBRANOUS COLITIS
     Dosage: 500 MG, 4X/DAY
     Route: 048
     Dates: start: 20070406, end: 20070410
  4. OXIRACETAM [Concomitant]
     Indication: ANXIETY
     Dosage: 800 MG, 2X/DAY
     Route: 048
     Dates: start: 20070322, end: 20070410
  5. MEROPENEM [Concomitant]
     Indication: PNEUMONIA
     Dosage: 1 G, 3X/DAY
     Route: 042
     Dates: start: 20070403, end: 20070410
  6. TEICOPLANIN [Concomitant]
     Indication: PNEUMONIA
     Dosage: 200 MG, 1X/DAY
     Route: 042
     Dates: start: 20070408, end: 20070410

REACTIONS (1)
  - DEATH [None]
